FAERS Safety Report 9633583 (Version 1)
Quarter: 2013Q4

REPORT INFORMATION
  Report Type: Spontaneous
  Country: DE (occurrence: DE)
  Receive Date: 20131021
  Receipt Date: 20131021
  Transmission Date: 20140711
  Serious: Yes (Congenital Anomaly)
  Sender: FDA-Public Use
  Company Number: GXKR2013DE003262

PATIENT
  Sex: 0

DRUGS (4)
  1. MIRTAZAPINE [Suspect]
     Dosage: MATERNAL DOSE: 30 [MG/D ]/ DOSE VARIED BETWEEN 15 AND 30 MG/D
     Route: 064
  2. CETIRIZIN [Concomitant]
     Dosage: MATERNAL DOSE: 10 [MG/D ]
     Route: 064
  3. NASONEX [Concomitant]
     Route: 064
  4. FOLSAEURE [Concomitant]
     Dosage: MATERNAL DOSE: 0.8 [MG/D ]
     Route: 064

REACTIONS (5)
  - Congenital aortic valve stenosis [Not Recovered/Not Resolved]
  - Congenital aortic valve incompetence [Not Recovered/Not Resolved]
  - Bicuspid aortic valve [Not Recovered/Not Resolved]
  - Atrial septal defect [Not Recovered/Not Resolved]
  - Cytogenetic abnormality [Not Recovered/Not Resolved]
